FAERS Safety Report 9524122 (Version 1)
Quarter: 2013Q1

REPORT INFORMATION
  Report Type: Spontaneous
  Country: US (occurrence: None)
  Receive Date: 20130305
  Receipt Date: 20130305
  Transmission Date: 20140127
  Serious: Yes (Hospitalization)
  Sender: FDA-Public Use
  Company Number: 163-21880-12022598

PATIENT
  Age: 49 Year
  Sex: Male

DRUGS (3)
  1. REVLIMID (LENALIDOMIDE) (25MILLIGRAM, CAPSULES) [Suspect]
     Indication: PLASMA CELL MYELOMA
     Dosage: 25MG, QD D1-14, PO
     Route: 048
     Dates: start: 20120126, end: 20120208
  2. VELCADE (BORTEZOMIB) (INJECTION) [Concomitant]
  3. DECADRON (DEXAMETHASONE) [Concomitant]

REACTIONS (1)
  - Anaemia [None]
